FAERS Safety Report 10684865 (Version 1)
Quarter: 2014Q4

REPORT INFORMATION
  Report Type: Spontaneous
  Country: US (occurrence: None)
  Receive Date: 20141230
  Receipt Date: 20141230
  Transmission Date: 20150529
  Serious: Yes (Disabling)
  Sender: FDA-Public Use
  Company Number: None

PATIENT
  Age: 64 Year
  Sex: Female
  Weight: 70.76 kg

DRUGS (1)
  1. CLINDAMYCIN HCL [Suspect]
     Active Substance: CLINDAMYCIN HYDROCHLORIDE
     Indication: ANTIBIOTIC PROPHYLAXIS
     Dosage: 2 PILLS TO START FOLLOWED BY 1 FOUR TIMES DAILY
     Dates: start: 20140909, end: 20140914

REACTIONS (7)
  - Joint swelling [None]
  - Musculoskeletal pain [None]
  - Drug effect decreased [None]
  - Muscular weakness [None]
  - Arthralgia [None]
  - Arthritis [None]
  - Weight bearing difficulty [None]

NARRATIVE: CASE EVENT DATE: 20140918
